FAERS Safety Report 15540943 (Version 1)
Quarter: 2018Q4

REPORT INFORMATION
  Report Type: Spontaneous
  Country: PT (occurrence: PT)
  Receive Date: 20181023
  Receipt Date: 20181023
  Transmission Date: 20190205
  Serious: Yes (Hospitalization)
  Sender: FDA-Public Use
  Company Number: PT-MYLANLABS-2018M1077205

PATIENT
  Age: 79 Year
  Sex: Male

DRUGS (1)
  1. ROPIVACAINE. [Suspect]
     Active Substance: ROPIVACAINE HYDROCHLORIDE
     Indication: LOCAL ANAESTHESIA
     Route: 056

REACTIONS (10)
  - Tremor [Recovered/Resolved]
  - Rash [Recovered/Resolved]
  - Systemic toxicity [Recovered/Resolved]
  - Disorientation [Recovered/Resolved]
  - Lipase increased [Recovered/Resolved]
  - Dermatitis [Recovered/Resolved]
  - Myoclonus [Recovered/Resolved]
  - Tachyarrhythmia [Recovered/Resolved]
  - Hypertension [Recovered/Resolved]
  - Amylase increased [Recovered/Resolved]
